FAERS Safety Report 6747542-1 (Version None)
Quarter: 2010Q2

REPORT INFORMATION
  Report Type: 
  Country: None (occurrence: None)
  Receive Date: 20100528
  Receipt Date: 20100520
  Transmission Date: 20101027
  Serious: Yes (Death)
  Sender: FDA-Public Use
  Company Number: GXKR2010TR05663

PATIENT
  Age: 63 Year
  Sex: Female

DRUGS (5)
  1. DOXORUBICIN (NGX) [Suspect]
     Indication: MANTLE CELL LYMPHOMA
  2. PREDNISOLONE (NGX) [Suspect]
     Indication: MANTLE CELL LYMPHOMA
  3. CYCLOPHOSPHAMIDE [Suspect]
     Indication: MANTLE CELL LYMPHOMA
  4. RITUXIMAB [Suspect]
     Indication: MANTLE CELL LYMPHOMA
  5. VINCRISTINE [Concomitant]

REACTIONS (7)
  - ABDOMINAL PAIN [None]
  - DECREASED APPETITE [None]
  - MUCORMYCOSIS [None]
  - NAUSEA [None]
  - NEUTROPENIA [None]
  - PYREXIA [None]
  - VOMITING [None]
